FAERS Safety Report 10356581 (Version 3)
Quarter: 2014Q4

REPORT INFORMATION
  Report Type: Spontaneous
  Country: US (occurrence: US)
  Receive Date: 20140801
  Receipt Date: 20141028
  Transmission Date: 20150528
  Serious: No
  Sender: FDA-Public Use
  Company Number: US-PFIZER INC-2014211012

PATIENT
  Sex: Female

DRUGS (2)
  1. VFEND [Suspect]
     Active Substance: VORICONAZOLE
     Indication: ASPERGILLUS INFECTION
  2. VFEND [Suspect]
     Active Substance: VORICONAZOLE
     Indication: ASTHMA
     Dosage: UNK

REACTIONS (2)
  - Therapeutic response unexpected [Unknown]
  - Intentional product misuse [Unknown]
